FAERS Safety Report 8106181 (Version 2)
Quarter: 2014Q3

REPORT INFORMATION
  Report Type: Spontaneous
  Country: ZA (occurrence: ZA)
  Receive Date: 20110825
  Receipt Date: 20140731
  Transmission Date: 20150326
  Serious: No
  Sender: FDA-Public Use
  Company Number: ZA-ROCHE-797056

PATIENT
  Sex: Female

DRUGS (1)
  1. ROACCUTANE [Suspect]
     Active Substance: ISOTRETINOIN
     Indication: ACNE
     Route: 065
     Dates: start: 20110808, end: 20110814

REACTIONS (2)
  - Pregnancy [Unknown]
  - No adverse event [Unknown]
